FAERS Safety Report 8353974-0 (Version None)
Quarter: 2012Q2

REPORT INFORMATION
  Report Type: 
  Country: None (occurrence: None)
  Receive Date: 20120511
  Receipt Date: 20101213
  Transmission Date: 20120825
  Serious: No
  Sender: FDA-Public Use
  Company Number: US-TEVA-2010006436

PATIENT
  Sex: Male
  Weight: 88.984 kg

DRUGS (7)
  1. SIMVASTATIN [Concomitant]
     Indication: BLOOD CHOLESTEROL INCREASED
     Dosage: 80 MILLIGRAM;
     Route: 048
     Dates: start: 20100101
  2. NUVIGIL [Suspect]
     Dosage: 500 MILLIGRAM;
     Route: 048
     Dates: start: 20101208
  3. VALIUM [Concomitant]
     Indication: PANIC DISORDER
     Dosage: 5 TO 15 MG DOSAGE VARIES
     Route: 048
     Dates: start: 19970101
  4. TRILIPIX [Concomitant]
     Indication: BLOOD CHOLESTEROL INCREASED
     Dosage: 45 MILLIGRAM;
     Route: 048
     Dates: start: 20100901
  5. ASPIRIN [Concomitant]
     Dosage: 81 MILLIGRAM;
     Route: 048
  6. NEURONTIN [Concomitant]
     Indication: AFFECTIVE DISORDER
     Dosage: 2400 MILLIGRAM;
     Route: 048
     Dates: start: 20020101
  7. NUVIGIL [Suspect]
     Indication: FATIGUE
     Dosage: 500 MILLIGRAM;
     Route: 048
     Dates: start: 20100901, end: 20101001

REACTIONS (4)
  - INITIAL INSOMNIA [None]
  - DRUG INEFFECTIVE FOR UNAPPROVED INDICATION [None]
  - STOMATITIS [None]
  - FLUSHING [None]
